FAERS Safety Report 21776169 (Version 1)
Quarter: 2022Q4

REPORT INFORMATION
  Report Type: Spontaneous
  Country: NL (occurrence: NL)
  Receive Date: 20221226
  Receipt Date: 20221226
  Transmission Date: 20230113
  Serious: Yes (Other)
  Sender: FDA-Public Use
  Company Number: None

PATIENT
  Sex: Female
  Weight: 71 kg

DRUGS (1)
  1. COSENTYX [Suspect]
     Active Substance: SECUKINUMAB
     Indication: Psoriatic arthropathy
     Dosage: 150 MG, QMO (1 KEER PER MAAND 150 MG, MET OPLAADDOSERING)
     Route: 065
     Dates: start: 20220726, end: 20221102

REACTIONS (1)
  - Dermatitis exfoliative [Recovering/Resolving]
